FAERS Safety Report 11653373 (Version 2)
Quarter: 2015Q4

REPORT INFORMATION
  Report Type: Report from Study
  Country: US (occurrence: US)
  Receive Date: 20151022
  Receipt Date: 20151023
  Transmission Date: 20160304
  Serious: Yes (Disabling)
  Sender: FDA-Public Use
  Company Number: PHEH2015US020767

PATIENT
  Sex: Female

DRUGS (1)
  1. VOTRIENT [Suspect]
     Active Substance: PAZOPANIB HYDROCHLORIDE
     Indication: OVARIAN CANCER
     Dosage: 400 MG, QD
     Route: 048
     Dates: end: 20151006

REACTIONS (3)
  - Dyspnoea [Unknown]
  - Rash [Unknown]
  - Hypersensitivity [Recovering/Resolving]
